FAERS Safety Report 9412502 (Version 1)
Quarter: 2013Q2

REPORT INFORMATION
  Report Type: Spontaneous
  Country: US (occurrence: None)
  Receive Date: 20130418
  Receipt Date: 20130418
  Transmission Date: 20140414
  Serious: Yes (Other)
  Sender: FDA-Public Use
  Company Number: CA13-0167

PATIENT
  Age: 50 Year
  Sex: Female

DRUGS (1)
  1. ENOXAPARIN SODIUM [Suspect]
     Indication: PROTEIN C DEFICIENCY
     Dosage: 80MG/0.8ML, ?INJECTION?
     Dates: start: 20130122, end: 20130130

REACTIONS (2)
  - Wrong technique in drug usage process [None]
  - Underdose [None]
